FAERS Safety Report 10372937 (Version 2)
Quarter: 2014Q3

REPORT INFORMATION
  Report Type: Spontaneous
  Country: US (occurrence: US)
  Receive Date: 20140808
  Receipt Date: 20140808
  Transmission Date: 20150326
  Serious: No
  Sender: FDA-Public Use
  Company Number: US-BRISTOL-MYERS SQUIBB COMPANY-19811249

PATIENT
  Age: 48 Year
  Sex: Male
  Weight: 74.37 kg

DRUGS (2)
  1. SPRYCEL [Suspect]
     Active Substance: DASATINIB
     Indication: CHRONIC MYELOID LEUKAEMIA
     Dosage: TABLET
     Route: 048
     Dates: start: 201306
  2. EXCEDRIN [Concomitant]
     Active Substance: ACETAMINOPHEN\ASPIRIN\CAFFEINE
     Indication: MIGRAINE
     Dosage: TABS

REACTIONS (4)
  - Headache [Unknown]
  - Rash pruritic [Unknown]
  - Abdominal pain upper [Unknown]
  - Influenza [Unknown]

NARRATIVE: CASE EVENT DATE: 20131012
